FAERS Safety Report 15523705 (Version 3)
Quarter: 2018Q4

REPORT INFORMATION
  Report Type: Report from Study
  Country: None (occurrence: US)
  Receive Date: 20181018
  Receipt Date: 20181204
  Transmission Date: 20190205
  Serious: Yes (Other)
  Sender: FDA-Public Use
  Company Number: US-ABBVIE-18K-163-2521295-00

PATIENT
  Age: 68 Year
  Sex: Male

DRUGS (2)
  1. HUMIRA [Suspect]
     Active Substance: ADALIMUMAB
     Indication: PSORIASIS
     Route: 058
  2. HUMIRA [Suspect]
     Active Substance: ADALIMUMAB
     Route: 058

REACTIONS (7)
  - Skin disorder [Unknown]
  - Hyperacusis [Unknown]
  - Otorrhoea [Unknown]
  - Psoriasis [Unknown]
  - Arthralgia [Unknown]
  - Device issue [Unknown]
  - Deafness [Unknown]

NARRATIVE: CASE EVENT DATE: 201807
